FAERS Safety Report 5776776-8 (Version None)
Quarter: 2008Q2

REPORT INFORMATION
  Report Type: 
  Country: None (occurrence: None)
  Receive Date: 20080618
  Receipt Date: 20080326
  Transmission Date: 20081010
  Serious: No
  Sender: FDA-Public Use
  Company Number: US-ASTRAZENECA-2008UW06032

PATIENT
  Age: 70 Year
  Sex: Female
  Weight: 59.9 kg

DRUGS (4)
  1. SYMBICORT [Suspect]
     Indication: BRONCHITIS
     Dosage: 160/4.5  2 PUFFS TWICE A DAY
     Route: 055
     Dates: start: 20080205
  2. SYMBICORT [Suspect]
     Indication: DYSPNOEA
     Dosage: 160/4.5  2 PUFFS TWICE A DAY
     Route: 055
     Dates: start: 20080205
  3. LISINOPRIL [Concomitant]
     Route: 048
  4. LEXAPRO [Concomitant]

REACTIONS (5)
  - ERYTHEMA [None]
  - EYE DISORDER [None]
  - EYE INFECTION [None]
  - OCULAR HYPERAEMIA [None]
  - SKIN WRINKLING [None]
